FAERS Safety Report 18694138 (Version 1)
Quarter: 2021Q1

REPORT INFORMATION
  Report Type: Spontaneous
  Country: None (occurrence: US)
  Receive Date: 20210104
  Receipt Date: 20210104
  Transmission Date: 20210419
  Serious: Yes (Other)
  Sender: FDA-Public Use
  Company Number: US-RECORDATI RARE DISEASES INC.-2020005377

PATIENT

DRUGS (13)
  1. ONCOVIN [Concomitant]
     Active Substance: VINCRISTINE SULFATE
     Indication: PRODUCT USED FOR UNKNOWN INDICATION
  2. VIDAZA [Concomitant]
     Active Substance: AZACITIDINE
     Indication: PRODUCT USED FOR UNKNOWN INDICATION
  3. PROCARBAZINE HYDROCHLORIDE [Concomitant]
     Active Substance: PROCARBAZINE HYDROCHLORIDE
     Indication: PRODUCT USED FOR UNKNOWN INDICATION
  4. PREDNISONE. [Concomitant]
     Active Substance: PREDNISONE
     Indication: PRODUCT USED FOR UNKNOWN INDICATION
  5. ADRIAMYCIN [Concomitant]
     Active Substance: DOXORUBICIN HYDROCHLORIDE
     Indication: PRODUCT USED FOR UNKNOWN INDICATION
  6. MUSTARGEN [Suspect]
     Active Substance: MECHLORETHAMINE HYDROCHLORIDE
     Indication: HODGKIN^S DISEASE
     Dosage: UNK
     Route: 065
  7. IFOSFAMIDE. [Concomitant]
     Active Substance: IFOSFAMIDE
     Indication: PRODUCT USED FOR UNKNOWN INDICATION
  8. BLEOMYCIN SULFATE [Concomitant]
     Active Substance: BLEOMYCIN SULFATE
     Indication: PRODUCT USED FOR UNKNOWN INDICATION
  9. VINBLASTINE SULFATE. [Concomitant]
     Active Substance: VINBLASTINE SULFATE
     Indication: PRODUCT USED FOR UNKNOWN INDICATION
  10. RITUXAN [Concomitant]
     Active Substance: RITUXIMAB
     Indication: PRODUCT USED FOR UNKNOWN INDICATION
  11. CARBOPLATIN. [Concomitant]
     Active Substance: CARBOPLATIN
     Indication: PRODUCT USED FOR UNKNOWN INDICATION
  12. ETOPOSIDE. [Concomitant]
     Active Substance: ETOPOSIDE
     Indication: PRODUCT USED FOR UNKNOWN INDICATION
  13. DACARBAZINE. [Concomitant]
     Active Substance: DACARBAZINE
     Indication: PRODUCT USED FOR UNKNOWN INDICATION

REACTIONS (1)
  - Myelodysplastic syndrome [Unknown]
